FAERS Safety Report 8880409 (Version 2)
Quarter: 2012Q4

REPORT INFORMATION
  Report Type: 
  Country: CN (occurrence: CN)
  Receive Date: 20121101
  Receipt Date: 20121112
  Transmission Date: 20130627
  Serious: Yes (Other)
  Sender: FDA-Public Use
  Company Number: PHHY2012CN098448

PATIENT
  Age: 31 Year
  Sex: Female

DRUGS (2)
  1. STARLIX [Suspect]
     Indication: DIABETES MELLITUS
     Dosage: One tablet every noon and night
  2. STARLIX [Suspect]
     Dosage: Half tablet

REACTIONS (4)
  - Pityriasis rosea [Recovering/Resolving]
  - Erythema [Unknown]
  - Rash generalised [Recovering/Resolving]
  - Hypoglycaemia [Recovering/Resolving]
